FAERS Safety Report 7287289-9 (Version None)
Quarter: 2011Q1

REPORT INFORMATION
  Report Type: 
  Country: None (occurrence: None)
  Receive Date: 20110211
  Receipt Date: 20110131
  Transmission Date: 20110831
  Serious: Yes (Death)
  Sender: FDA-Public Use
  Company Number: JP-ROCHE-729194

PATIENT
  Age: 61 Year
  Sex: Female

DRUGS (4)
  1. CELLCEPT [Suspect]
     Indication: GRAFT VERSUS HOST DISEASE
     Dosage: NOTE: DOSAGE IS UNCERTAIN.
     Route: 048
  2. FLUDARABINE PHOSPHATE [Concomitant]
     Route: 065
  3. TACROLIMUS [Concomitant]
     Dosage: NOTE: DOSAGE IS UNCERTAIN.
     Route: 065
  4. MELPHALAN [Concomitant]
     Route: 065

REACTIONS (1)
  - ACUTE MYELOID LEUKAEMIA [None]
